FAERS Safety Report 9300449 (Version 1)
Quarter: 2013Q2

REPORT INFORMATION
  Report Type: Spontaneous
  Country: NL (occurrence: NL)
  Receive Date: 20130521
  Receipt Date: 20130521
  Transmission Date: 20140414
  Serious: Yes (Hospitalization)
  Sender: FDA-Public Use
  Company Number: NL-PFIZER INC-2013153506

PATIENT
  Age: 53 Year
  Sex: Male

DRUGS (2)
  1. VENLAFAXINE HCL [Suspect]
     Dosage: 300 MG, 1X/DAY
     Dates: start: 20130504, end: 20130508
  2. VENLAFAXINE HCL [Suspect]
     Dosage: 225 MG, 1X/DAY
     Dates: start: 20130509

REACTIONS (4)
  - Overdose [Unknown]
  - Toxicity to various agents [Unknown]
  - Ataxia [Unknown]
  - Paraesthesia [Unknown]
